FAERS Safety Report 17211009 (Version 1)
Quarter: 2019Q4

REPORT INFORMATION
  Report Type: Report from Study
  Country: None (occurrence: US)
  Receive Date: 20191227
  Receipt Date: 20191227
  Transmission Date: 20200122
  Serious: Yes (Other)
  Sender: FDA-Public Use
  Company Number: US-ABBVIE-19K-163-2991851-00

PATIENT
  Sex: Female
  Weight: 89.89 kg

DRUGS (4)
  1. LEVOTHYROXINE. [Concomitant]
     Active Substance: LEVOTHYROXINE
     Indication: HYPOTHYROIDISM
  2. HYDROCHLOROTHIAZIDE. [Concomitant]
     Active Substance: HYDROCHLOROTHIAZIDE
     Indication: FLUID RETENTION
  3. HUMIRA [Suspect]
     Active Substance: ADALIMUMAB
     Route: 058
     Dates: start: 20191206
  4. HUMIRA [Suspect]
     Active Substance: ADALIMUMAB
     Indication: RHEUMATOID ARTHRITIS
     Dosage: STAR DATE :ONE TO TWO YEARS PRIOR TO CANC
     Route: 058
     Dates: start: 2010, end: 2012

REACTIONS (3)
  - Uterine cancer [Recovered/Resolved]
  - Nasopharyngitis [Not Recovered/Not Resolved]
  - Heart valve stenosis [Unknown]

NARRATIVE: CASE EVENT DATE: 2012
